FAERS Safety Report 12977000 (Version 1)
Quarter: 2016Q4

REPORT INFORMATION
  Report Type: Spontaneous
  Country: AU (occurrence: AU)
  Receive Date: 20161128
  Receipt Date: 20161128
  Transmission Date: 20170207
  Serious: No
  Sender: FDA-Public Use
  Company Number: AU-LUPIN PHARMACEUTICALS INC.-2016-04373

PATIENT
  Sex: Female

DRUGS (1)
  1. PRAVASTATIN GENERICHEALTH 10MG TABLET BLISTER [Suspect]
     Active Substance: PRAVASTATIN
     Indication: PRODUCT USED FOR UNKNOWN INDICATION
     Route: 065

REACTIONS (3)
  - Product physical issue [Unknown]
  - Product packaging issue [Unknown]
  - No adverse event [Unknown]
